FAERS Safety Report 23709833 (Version 2)
Quarter: 2024Q2

REPORT INFORMATION
  Report Type: Report from Study
  Country: ES (occurrence: ES)
  Receive Date: 20240405
  Receipt Date: 20240529
  Transmission Date: 20240716
  Serious: Yes (Other)
  Sender: FDA-Public Use
  Company Number: ES-ABBVIE-5705404

PATIENT
  Age: 58 Year
  Sex: Female

DRUGS (30)
  1. UPADACITINIB [Suspect]
     Active Substance: UPADACITINIB
     Indication: Rheumatoid arthritis
     Route: 048
     Dates: start: 20210706
  2. METHOTREXATE [Concomitant]
     Active Substance: METHOTREXATE
     Indication: Rheumatoid arthritis
     Route: 058
     Dates: start: 20210202, end: 20230313
  3. INFLUENZA VIRUS VACCINE [Concomitant]
     Active Substance: INFLUENZA VIRUS VACCINE
     Indication: Antiviral prophylaxis
     Dosage: SEASONAL
     Dates: start: 20211123, end: 20211123
  4. INFLUENZA VIRUS VACCINE [Concomitant]
     Active Substance: INFLUENZA VIRUS VACCINE
     Indication: Antiviral prophylaxis
     Dosage: SEASONAL
     Dates: start: 20201119, end: 20201119
  5. INFLUENZA VIRUS VACCINE [Concomitant]
     Active Substance: INFLUENZA VIRUS VACCINE
     Indication: Antiviral prophylaxis
     Dosage: SEASONAL
     Dates: start: 20221021, end: 20221021
  6. ALENDRONIC ACID [Concomitant]
     Active Substance: ALENDRONIC ACID
     Indication: Rheumatoid arthritis
     Route: 048
     Dates: start: 20221024
  7. CALCIFEDIOL [Concomitant]
     Active Substance: CALCIFEDIOL
     Indication: Rheumatoid arthritis
     Route: 048
     Dates: start: 20211026, end: 20211226
  8. HEPATITIS A VACCINE NOS [Concomitant]
     Active Substance: HEPATITIS A VACCINE, INACTIVATED
     Indication: Antiviral prophylaxis
     Dates: start: 20210210, end: 20210210
  9. HEPATITIS A VACCINE NOS [Concomitant]
     Active Substance: HEPATITIS A VACCINE, INACTIVATED
     Indication: Antiviral prophylaxis
     Dates: start: 20200825, end: 20200825
  10. STREPTOCOCCUS PNEUMONIAE [Concomitant]
     Indication: Antibiotic prophylaxis
     Dosage: VACCINE
     Dates: start: 20200602, end: 20200602
  11. STREPTOCOCCUS PNEUMONIAE [Concomitant]
     Indication: Antibiotic prophylaxis
     Dosage: VACCINE
     Dates: start: 20200806, end: 20200806
  12. STREPTOCOCCUS PNEUMONIAE [Concomitant]
     Indication: Antibiotic prophylaxis
     Dosage: VACCINE
     Dates: start: 20230530, end: 20230530
  13. FOLIC ACID [Concomitant]
     Active Substance: FOLIC ACID
     Indication: Rheumatoid arthritis
     Route: 048
     Dates: start: 20201013
  14. CHOLECALCIFEROL [Concomitant]
     Active Substance: CHOLECALCIFEROL
     Indication: Rheumatoid arthritis
     Dosage: CALCIO CARBONATO 1.50G
     Route: 048
     Dates: start: 20201013
  15. HEPATITIS B VIRUS VACCINE [Concomitant]
     Active Substance: HEPATITIS B VIRUS VACCINE
     Indication: Antiviral prophylaxis
     Dates: start: 20200825, end: 20200825
  16. HEPATITIS B VIRUS VACCINE [Concomitant]
     Active Substance: HEPATITIS B VIRUS VACCINE
     Indication: Antiviral prophylaxis
     Dates: start: 20211123, end: 20211123
  17. HEPATITIS B VIRUS VACCINE [Concomitant]
     Active Substance: HEPATITIS B VIRUS VACCINE
     Indication: Antiviral prophylaxis
     Dates: start: 20221021, end: 20221021
  18. HEPATITIS B VIRUS VACCINE [Concomitant]
     Active Substance: HEPATITIS B VIRUS VACCINE
     Indication: Antiviral prophylaxis
     Dates: start: 20210210, end: 20210210
  19. HEPATITIS B VIRUS VACCINE [Concomitant]
     Active Substance: HEPATITIS B VIRUS VACCINE
     Indication: Antiviral prophylaxis
     Dates: start: 20200928, end: 20200928
  20. HEPATITIS B VIRUS VACCINE [Concomitant]
     Active Substance: HEPATITIS B VIRUS VACCINE
     Indication: Antiviral prophylaxis
     Dates: start: 20220310, end: 20220310
  21. HEPATITIS B VIRUS VACCINE [Concomitant]
     Active Substance: HEPATITIS B VIRUS VACCINE
     Indication: Antiviral prophylaxis
     Dates: start: 20220207, end: 20220207
  22. HEPATITIS B VIRUS VACCINE [Concomitant]
     Active Substance: HEPATITIS B VIRUS VACCINE
     Indication: Antiviral prophylaxis
     Dates: start: 20220621, end: 20220621
  23. SARS-CoV-2 vaccine [Concomitant]
     Indication: COVID-19 prophylaxis
     Dosage: SEVERE ACUTE RESPIRATORY SYNDROME CORONAVIRUS 2
     Dates: start: 20210511, end: 20210511
  24. SARS-CoV-2 vaccine [Concomitant]
     Indication: COVID-19 prophylaxis
     Dosage: SEVERE ACUTE RESPIRATORY SYNDROME CORONAVIRUS 2
     Dates: start: 20221021, end: 20221021
  25. SARS-CoV-2 vaccine [Concomitant]
     Indication: COVID-19 prophylaxis
     Dosage: SEVERE ACUTE RESPIRATORY SYNDROME CORONAVIRUS 2
     Dates: start: 20210601, end: 20210601
  26. SARS-CoV-2 vaccine [Concomitant]
     Indication: COVID-19 prophylaxis
     Dosage: SEVERE ACUTE RESPIRATORY SYNDROME CORONAVIRUS 2
     Dates: start: 20211013, end: 20211013
  27. SARS-CoV-2 vaccine [Concomitant]
     Indication: COVID-19 prophylaxis
     Dosage: SEVERE ACUTE RESPIRATORY SYNDROME CORONAVIRUS 2
     Dates: start: 20220316, end: 20220316
  28. OMEPRAZOLE [Concomitant]
     Active Substance: DONEPEZIL HYDROCHLORIDE\OMEPRAZOLE\OMEPRAZOLE MAGNESIUM
     Indication: Rheumatoid arthritis
     Route: 048
     Dates: start: 20201013
  29. CALCIO CARBONATO [Concomitant]
     Indication: Rheumatoid arthritis
     Route: 048
     Dates: start: 20201013
  30. DIPHTHERIA AND TETANUS TOXOIDS AND ACELLULAR PERTUSSIS VACCINE ADSORBE [Concomitant]
     Active Substance: DIPHTHERIA AND TETANUS TOXOIDS AND ACELLULAR PERTUSSIS VACCINE ADSORBED
     Indication: Antibiotic prophylaxis
     Dates: start: 20211123, end: 20211123

REACTIONS (1)
  - Syncope [Recovered/Resolved]

NARRATIVE: CASE EVENT DATE: 20221020
